FAERS Safety Report 17187662 (Version 4)
Quarter: 2020Q3

REPORT INFORMATION
  Report Type: Other
  Country: JP (occurrence: JP)
  Receive Date: 20191221
  Receipt Date: 20200924
  Transmission Date: 20201102
  Serious: Yes (Hospitalization)
  Sender: FDA-Public Use
  Company Number: JP-ROCHE-2501934

PATIENT
  Age: 6 Decade
  Sex: Male
  Weight: 50 kg

DRUGS (7)
  1. DOCETAXEL. [Concomitant]
     Active Substance: DOCETAXEL
     Indication: ADENOCARCINOMA
     Route: 041
  2. RAMUCIRUMAB [Concomitant]
     Active Substance: RAMUCIRUMAB
     Indication: ADENOCARCINOMA
     Route: 041
  3. TECENTRIQ [Suspect]
     Active Substance: ATEZOLIZUMAB
     Indication: ADENOCARCINOMA
     Route: 041
  4. CARBOPLATIN. [Concomitant]
     Active Substance: CARBOPLATIN
     Route: 041
  5. ALIMTA [Concomitant]
     Active Substance: PEMETREXED DISODIUM
     Route: 041
  6. AVASTIN [Suspect]
     Active Substance: BEVACIZUMAB
     Indication: NEOPLASM MALIGNANT
     Route: 041
  7. CELECOXIB. [Concomitant]
     Active Substance: CELECOXIB
     Dosage: DOSAGE IS UNCERTAIN.
     Route: 048

REACTIONS (6)
  - Gastritis [Recovered/Resolved]
  - Immune-mediated cholangitis [Recovered/Resolved]
  - Pleural effusion [Recovered/Resolved]
  - Diarrhoea [Unknown]
  - Intentional product use issue [Unknown]
  - Off label use [Unknown]
